FAERS Safety Report 12549243 (Version 1)
Quarter: 2016Q3

REPORT INFORMATION
  Report Type: Report from Study
  Country: US (occurrence: US)
  Receive Date: 20160712
  Receipt Date: 20160712
  Transmission Date: 20161109
  Serious: Yes (Other)
  Sender: FDA-Public Use
  Company Number: US-ABBVIE-16K-163-1666405-00

PATIENT
  Age: 30 Year
  Sex: Female
  Weight: 63.56 kg

DRUGS (3)
  1. HUMIRA [Suspect]
     Active Substance: ADALIMUMAB
     Indication: CROHN^S DISEASE
     Route: 058
     Dates: start: 20070911, end: 20080612
  2. PRENATAL VITAMINS [Concomitant]
     Active Substance: VITAMINS
     Indication: VITAMIN SUPPLEMENTATION
     Route: 048
     Dates: start: 20071013, end: 20080315
  3. PRENATAL VITAMINS [Concomitant]
     Active Substance: VITAMINS
     Dosage: 3.5 WEEK
     Route: 048
     Dates: start: 20080316, end: 20080612

REACTIONS (8)
  - Anal fistula [Unknown]
  - Pyrexia [Recovered/Resolved]
  - Perirectal abscess [Unknown]
  - Live birth [Unknown]
  - Exposure during pregnancy [Unknown]
  - Skin wound [Unknown]
  - Dyspepsia [Unknown]
  - Purulent discharge [Unknown]

NARRATIVE: CASE EVENT DATE: 20080312
